FAERS Safety Report 11050150 (Version 2)
Quarter: 2015Q2

REPORT INFORMATION
  Report Type: Spontaneous
  Country: BR (occurrence: BR)
  Receive Date: 20150420
  Receipt Date: 20150427
  Transmission Date: 20150821
  Serious: Yes (Other)
  Sender: FDA-Public Use
  Company Number: BR-AMGEN-BRASP2014076996

PATIENT
  Age: 17 Year
  Sex: Female
  Weight: 50 kg

DRUGS (7)
  1. FOLIC ACID. [Concomitant]
     Active Substance: FOLIC ACID
     Dosage: UNK
  2. NAPROXEN. [Concomitant]
     Active Substance: NAPROXEN
     Dosage: AS NEEDED (IF FEELING PAIN)
  3. CENTRUM                            /07499601/ [Concomitant]
     Indication: VITAMIN SUPPLEMENTATION
     Dosage: UNK
     Dates: start: 2013
  4. CALCIUM [Concomitant]
     Active Substance: CALCIUM
     Dosage: UNK
     Dates: start: 2013
  5. ENBREL [Suspect]
     Active Substance: ETANERCEPT
     Indication: JUVENILE IDIOPATHIC ARTHRITIS
     Dosage: 0.8ML TWICE WEEKLY (40 MG, WEEKLY)
     Route: 058
     Dates: start: 201409
  6. COLECALCIFEROL [Concomitant]
     Active Substance: CHOLECALCIFEROL
     Dosage: UNK
     Dates: start: 2013
  7. NAPROXEN. [Concomitant]
     Active Substance: NAPROXEN
     Dosage: AS NEEDED (IF FEELING PAIN)

REACTIONS (12)
  - Product quality issue [Not Recovered/Not Resolved]
  - Sinusitis bacterial [Recovered/Resolved]
  - Headache [Not Recovered/Not Resolved]
  - Tremor [Recovered/Resolved]
  - Injection site haematoma [Not Recovered/Not Resolved]
  - Oral herpes [Unknown]
  - Asthenia [Recovered/Resolved]
  - Abdominal pain upper [Unknown]
  - Hunger [Recovered/Resolved]
  - Injection site extravasation [Not Recovered/Not Resolved]
  - Injection site haemorrhage [Not Recovered/Not Resolved]
  - Blood glucose abnormal [Recovered/Resolved]

NARRATIVE: CASE EVENT DATE: 2014
